FAERS Safety Report 23404153 (Version 13)
Quarter: 2024Q4

REPORT INFORMATION
  Report Type: Report from Study
  Country: CA (occurrence: CA)
  Receive Date: 20240116
  Receipt Date: 20241007
  Transmission Date: 20250115
  Serious: Yes (Other)
  Sender: ROCHE
  Company Number: CA-ROCHE-3474671

PATIENT
  Sex: Female

DRUGS (3)
  1. OCREVUS [Suspect]
     Active Substance: OCRELIZUMAB
     Indication: Relapsing-remitting multiple sclerosis
     Dosage: 300 MG AT DAY 0 AND 14, THEN 600 MG EVERY 6 MONTHS
     Route: 042
     Dates: start: 20231208
  2. BENADRYL [Suspect]
     Active Substance: DIPHENHYDRAMINE HYDROCHLORIDE
     Indication: Product used for unknown indication
     Route: 065
  3. IMODIUM [Suspect]
     Active Substance: LOPERAMIDE HYDROCHLORIDE
     Indication: Product used for unknown indication
     Route: 065

REACTIONS (19)
  - Blindness [Recovering/Resolving]
  - Infusion related reaction [Unknown]
  - Asthenia [Not Recovered/Not Resolved]
  - Diarrhoea [Not Recovered/Not Resolved]
  - Drug hypersensitivity [Unknown]
  - Influenza [Not Recovered/Not Resolved]
  - Liver disorder [Unknown]
  - Hypersensitivity [Unknown]
  - Hepatic mass [Unknown]
  - Pain in extremity [Not Recovered/Not Resolved]
  - Hypoaesthesia [Not Recovered/Not Resolved]
  - Hepatic steatosis [Unknown]
  - Fatigue [Unknown]
  - Stress [Unknown]
  - Anxiety [Unknown]
  - Gastrointestinal disorder [Unknown]
  - Respiratory symptom [Not Recovered/Not Resolved]
  - Visual impairment [Recovering/Resolving]
  - Foaming at mouth [Unknown]
